FAERS Safety Report 21528275 (Version 3)
Quarter: 2022Q4

REPORT INFORMATION
  Report Type: Spontaneous
  Country: US (occurrence: US)
  Receive Date: 20221031
  Receipt Date: 20221206
  Transmission Date: 20230112
  Serious: No
  Sender: FDA-Public Use
  Company Number: US-PFIZER INC-202201265001

PATIENT
  Age: 59 Year
  Sex: Male
  Weight: 86.168 kg

DRUGS (8)
  1. PAXLOVID [Suspect]
     Active Substance: NIRMATRELVIR\RITONAVIR
     Indication: COVID-19 treatment
     Dosage: [PF-07321332 300 MG]/[RITONAVIR 100 MG]; 2X/DAY
     Dates: start: 20221019, end: 20221023
  2. LORATADINE [Concomitant]
     Active Substance: LORATADINE
     Dosage: UNK
     Dates: start: 20010101, end: 20221018
  3. LORATADINE [Concomitant]
     Active Substance: LORATADINE
     Dosage: UNK
     Dates: start: 20221026
  4. CENTRUM SILVER [ASCORBIC ACID;CALCIUM;MINERALS NOS;RETINOL;TOCOPHERYL [Concomitant]
     Dosage: UNK
     Route: 048
     Dates: start: 201501
  5. CENTRUM SILVER [ASCORBIC ACID;CALCIUM;MINERALS NOS;RETINOL;TOCOPHERYL [Concomitant]
     Dosage: UNK
     Dates: start: 20171204
  6. IRBESARTAN [Concomitant]
     Active Substance: IRBESARTAN
     Indication: Hypertension
     Dosage: UNK
     Route: 048
     Dates: start: 202004
  7. IRBESARTAN [Concomitant]
     Active Substance: IRBESARTAN
     Dosage: UNK
     Dates: start: 202006
  8. CLARITIN [Concomitant]
     Active Substance: LORATADINE
     Indication: Hypersensitivity
     Dosage: UNK
     Route: 048
     Dates: start: 200501

REACTIONS (2)
  - COVID-19 [Recovered/Resolved]
  - Disease recurrence [Recovered/Resolved]

NARRATIVE: CASE EVENT DATE: 20221027
